FAERS Safety Report 6747146-0 (Version None)
Quarter: 2010Q2

REPORT INFORMATION
  Report Type: 
  Country: None (occurrence: None)
  Receive Date: 20100528
  Receipt Date: 20100519
  Transmission Date: 20101027
  Serious: Yes (Other)
  Sender: FDA-Public Use
  Company Number: US-PFIZER INC-2010010899

PATIENT
  Sex: Female
  Weight: 68.027 kg

DRUGS (3)
  1. SILDENAFIL CITRATE [Suspect]
     Indication: LUNG DISORDER
     Dosage: 50 MG, 3X/DAY
  2. CALCIUM [Concomitant]
     Dosage: UNK
  3. FOLIC ACID [Concomitant]
     Dosage: UNK

REACTIONS (5)
  - ARRHYTHMIA [None]
  - BREAST CANCER [None]
  - CARDIAC DISORDER [None]
  - GOUT [None]
  - WEIGHT DECREASED [None]
